FAERS Safety Report 6617352-4 (Version None)
Quarter: 2010Q1

REPORT INFORMATION
  Report Type: 
  Country: None (occurrence: None)
  Receive Date: 20100307
  Receipt Date: 20091217
  Transmission Date: 20100710
  Serious: No
  Sender: FDA-Public Use
  Company Number: FR-BAYER-200943447GPV

PATIENT
  Age: 63 Year
  Sex: Male

DRUGS (2)
  1. NEXAVAR [Suspect]
     Indication: HEPATIC NEOPLASM MALIGNANT
     Route: 048
     Dates: start: 20090101
  2. NEXAVAR [Suspect]
     Route: 048
     Dates: start: 20081201

REACTIONS (2)
  - CONFUSIONAL STATE [None]
  - HEPATIC ENCEPHALOPATHY [None]
